FAERS Safety Report 6413523-0 (Version None)
Quarter: 2009Q4

REPORT INFORMATION
  Report Type: 
  Country: None (occurrence: None)
  Receive Date: 20091026
  Receipt Date: 20091014
  Transmission Date: 20100525
  Serious: Yes (Hospitalization)
  Sender: FDA-Public Use
  Company Number: US-KINGPHARMUSA00001-K200901273

PATIENT
  Age: 84 Year
  Sex: Female

DRUGS (15)
  1. ALTACE [Suspect]
     Indication: HYPERTENSION
     Dosage: 1.25 MG, BID
     Route: 048
     Dates: end: 20080412
  2. KARDEGIC [Concomitant]
     Dosage: 160 MG, UNK
     Route: 048
  3. PREVISCAN [Concomitant]
     Route: 048
  4. CARDENSIEL [Concomitant]
     Dosage: 10 MG, UNK
     Route: 048
  5. TAHOR [Concomitant]
     Dosage: 40 MG, UNK
     Route: 048
  6. ARICEPT [Concomitant]
     Dosage: 5 MG, UNK
     Route: 048
  7. SEREVENT [Concomitant]
     Dosage: 2 U, UNK
  8. BECOTIDE [Concomitant]
     Dosage: 2 U, UNK
  9. MAXAIR [Concomitant]
     Dosage: UNK
  10. PROLAIR [Concomitant]
  11. BRICANYL/ATROVENT [Concomitant]
  12. XANAX [Concomitant]
     Dosage: 0.5 MG, UNK
     Route: 048
  13. NEXIUM [Concomitant]
     Dosage: 40 MG, UNK
     Route: 048
  14. RULID [Concomitant]
  15. TEXODIL [Concomitant]

REACTIONS (15)
  - ANTICOAGULATION DRUG LEVEL ABOVE THERAPEUTIC [None]
  - BLOOD CREATININE INCREASED [None]
  - COUGH [None]
  - DEHYDRATION [None]
  - HAEMATOMA [None]
  - HAEMATURIA [None]
  - HAEMOPHILUS INFECTION [None]
  - HAEMORRHAGE [None]
  - HYPOTENSION [None]
  - HYPOVOLAEMIA [None]
  - INFLAMMATION [None]
  - INTERSTITIAL LUNG DISEASE [None]
  - PULMONARY CONGESTION [None]
  - RENAL FAILURE ACUTE [None]
  - STAPHYLOCOCCAL INFECTION [None]
